FAERS Safety Report 21863305 (Version 1)
Quarter: 2023Q1

REPORT INFORMATION
  Report Type: Report from Study
  Country: CN (occurrence: CN)
  Receive Date: 20230115
  Receipt Date: 20230115
  Transmission Date: 20230417
  Serious: Yes (Hospitalization)
  Sender: FDA-Public Use
  Company Number: CN-JNJFOC-20230109408

PATIENT
  Age: 90 Year
  Sex: Female

DRUGS (19)
  1. DARATUMUMAB [Suspect]
     Active Substance: DARATUMUMAB
     Indication: Plasma cell myeloma
     Route: 042
     Dates: start: 20211014, end: 20211015
  2. DARATUMUMAB [Suspect]
     Active Substance: DARATUMUMAB
     Route: 042
     Dates: start: 20211021
  3. DARATUMUMAB [Suspect]
     Active Substance: DARATUMUMAB
     Route: 042
     Dates: start: 20211028
  4. DARATUMUMAB [Suspect]
     Active Substance: DARATUMUMAB
     Route: 042
     Dates: start: 20211104
  5. DARATUMUMAB [Suspect]
     Active Substance: DARATUMUMAB
     Route: 042
     Dates: start: 20211104
  6. DARATUMUMAB [Suspect]
     Active Substance: DARATUMUMAB
     Route: 042
     Dates: start: 20211125
  7. DARATUMUMAB [Suspect]
     Active Substance: DARATUMUMAB
     Route: 042
     Dates: start: 20211202
  8. DARATUMUMAB [Suspect]
     Active Substance: DARATUMUMAB
     Route: 042
     Dates: start: 20220128
  9. DARATUMUMAB [Suspect]
     Active Substance: DARATUMUMAB
     Route: 042
     Dates: start: 20220210
  10. DARATUMUMAB [Suspect]
     Active Substance: DARATUMUMAB
     Route: 042
     Dates: start: 20220224
  11. DARATUMUMAB [Suspect]
     Active Substance: DARATUMUMAB
     Route: 042
     Dates: start: 20220310
  12. DARATUMUMAB [Suspect]
     Active Substance: DARATUMUMAB
     Route: 042
     Dates: start: 20220325
  13. DARATUMUMAB [Suspect]
     Active Substance: DARATUMUMAB
     Route: 042
     Dates: start: 20220428
  14. DARATUMUMAB [Suspect]
     Active Substance: DARATUMUMAB
     Route: 042
     Dates: start: 20220526
  15. DARATUMUMAB [Suspect]
     Active Substance: DARATUMUMAB
     Route: 042
     Dates: start: 20220630
  16. DARATUMUMAB [Suspect]
     Active Substance: DARATUMUMAB
     Route: 042
     Dates: start: 20220728
  17. DARATUMUMAB [Suspect]
     Active Substance: DARATUMUMAB
     Route: 042
     Dates: start: 20220825
  18. DARATUMUMAB [Suspect]
     Active Substance: DARATUMUMAB
     Route: 042
     Dates: start: 20221027
  19. DARATUMUMAB [Suspect]
     Active Substance: DARATUMUMAB
     Route: 042
     Dates: start: 20221128

REACTIONS (1)
  - COVID-19 [Not Recovered/Not Resolved]

NARRATIVE: CASE EVENT DATE: 20221227
